FAERS Safety Report 10055109 (Version 2)
Quarter: 2014Q2

REPORT INFORMATION
  Report Type: Spontaneous
  Country: US (occurrence: US)
  Receive Date: 20140402
  Receipt Date: 20140625
  Transmission Date: 20141212
  Serious: No
  Sender: FDA-Public Use
  Company Number: US-SA-2014SA013057

PATIENT
  Age: 44 Year
  Sex: Female

DRUGS (9)
  1. AUBAGIO [Suspect]
     Indication: MULTIPLE SCLEROSIS
     Route: 048
     Dates: start: 201310, end: 20140129
  2. KLONOPIN [Concomitant]
     Dosage: 2MG AM?3MG PM
  3. BACLOFEN [Concomitant]
  4. MERCAPTOPURINE [Concomitant]
  5. PREVACID [Concomitant]
  6. SINGULAIR [Concomitant]
  7. COMBIVENT [Concomitant]
  8. VESICARE [Concomitant]
  9. FIORICET [Concomitant]

REACTIONS (4)
  - Hypersensitivity [Recovering/Resolving]
  - Chest discomfort [Recovered/Resolved]
  - Dyspnoea [Recovering/Resolving]
  - Heart rate increased [Recovered/Resolved]
